FAERS Safety Report 7075887-7 (Version None)
Quarter: 2010Q4

REPORT INFORMATION
  Report Type: 
  Country: None (occurrence: None)
  Receive Date: 20101101
  Receipt Date: 20101021
  Transmission Date: 20110411
  Serious: No
  Sender: FDA-Public Use
  Company Number: US-BIOGENIDEC-2010BI037138

PATIENT
  Age: 30 Year
  Sex: Male

DRUGS (3)
  1. TYSABRI [Suspect]
     Indication: MULTIPLE SCLEROSIS
     Route: 042
     Dates: start: 20070629, end: 20080728
  2. TYSABRI [Suspect]
     Route: 042
     Dates: start: 20100714
  3. AVONEX [Concomitant]
     Route: 030
     Dates: start: 20080912

REACTIONS (5)
  - GINGIVAL ULCERATION [None]
  - HYPOAESTHESIA [None]
  - NECK PAIN [None]
  - PARAESTHESIA [None]
  - SENSATION OF HEAVINESS [None]
